FAERS Safety Report 9345837 (Version 2)
Quarter: 2013Q3

REPORT INFORMATION
  Report Type: Spontaneous
  Country: US (occurrence: US)
  Receive Date: 20130613
  Receipt Date: 20130708
  Transmission Date: 20140515
  Serious: Yes (Other)
  Sender: FDA-Public Use
  Company Number: US-PFIZER INC-2013174384

PATIENT
  Age: 39 Year
  Sex: Female
  Weight: 72.6 kg

DRUGS (3)
  1. DEPO-PROVERA [Suspect]
     Indication: CONTRACEPTION
     Dosage: 150 MG, EVERY 3 MONTHS
     Route: 030
     Dates: start: 2002, end: 201304
  2. DEPO-PROVERA [Suspect]
     Indication: MENORRHAGIA
  3. DEPO-PROVERA [Suspect]
     Indication: BACK PAIN

REACTIONS (2)
  - Osteoporosis [Not Recovered/Not Resolved]
  - Osteopenia [Not Recovered/Not Resolved]
